FAERS Safety Report 8606040-0 (Version None)
Quarter: 2012Q3

REPORT INFORMATION
  Report Type: 
  Country: None (occurrence: None)
  Receive Date: 20120820
  Receipt Date: 20120808
  Transmission Date: 20120928
  Serious: Yes (Hospitalization)
  Sender: FDA-Public Use
  Company Number: US-ROCHE-1099577

PATIENT
  Sex: Female
  Weight: 43.584 kg

DRUGS (1)
  1. XELODA [Suspect]
     Indication: COLON CANCER
     Route: 048

REACTIONS (5)
  - STOMATITIS [None]
  - WHITE BLOOD CELL DISORDER [None]
  - NEUTROPENIA [None]
  - ASTHENIA [None]
  - ELECTROLYTE IMBALANCE [None]
